FAERS Safety Report 24011147 (Version 1)
Quarter: 2024Q2

REPORT INFORMATION
  Report Type: Spontaneous
  Country: US (occurrence: None)
  Receive Date: 20240625
  Receipt Date: 20240625
  Transmission Date: 20240716
  Serious: Yes (Hospitalization)
  Sender: FDA-Public Use
  Company Number: None

PATIENT
  Age: 53 Year
  Sex: Female

DRUGS (2)
  1. TAVNEOS [Suspect]
     Active Substance: AVACOPAN
     Dosage: FREQUENCY : TWICE A DAY;?
     Route: 048
     Dates: start: 20240530
  2. TAVNEOS [Concomitant]
     Active Substance: AVACOPAN
     Dates: start: 20240530

REACTIONS (2)
  - Obstructive airways disorder [None]
  - Upper airway obstruction [None]

NARRATIVE: CASE EVENT DATE: 20240624
